FAERS Safety Report 7993409-0 (Version None)
Quarter: 2011Q4

REPORT INFORMATION
  Report Type: 
  Country: None (occurrence: None)
  Receive Date: 20111219
  Receipt Date: 20101104
  Transmission Date: 20120403
  Serious: No
  Sender: FDA-Public Use
  Company Number: US-ASTRAZENECA-2010SE35841

PATIENT
  Age: 821 Month
  Sex: Male
  Weight: 108.9 kg

DRUGS (3)
  1. CRESTOR [Suspect]
     Indication: HYPERCHOLESTEROLAEMIA
     Route: 048
  2. BYSTOLIC [Concomitant]
     Indication: BLOOD PRESSURE
  3. ASPIRIN [Concomitant]

REACTIONS (1)
  - NEPHROLITHIASIS [None]
